FAERS Safety Report 7260378-0 (Version None)
Quarter: 2011Q1

REPORT INFORMATION
  Report Type: 
  Country: None (occurrence: None)
  Receive Date: 20110130
  Receipt Date: 20101019
  Transmission Date: 20110831
  Serious: No
  Sender: FDA-Public Use
  Company Number: US-ABBOTT-10P-163-0679723-00

PATIENT
  Sex: Female

DRUGS (1)
  1. HUMIRA [Suspect]
     Indication: RHEUMATOID ARTHRITIS
     Dates: start: 20101003

REACTIONS (6)
  - HEADACHE [None]
  - COMPLEX REGIONAL PAIN SYNDROME [None]
  - NAUSEA [None]
  - PAIN IN EXTREMITY [None]
  - DIZZINESS [None]
  - RESPIRATORY TRACT INFECTION [None]
